FAERS Safety Report 5014407-5 (Version None)
Quarter: 2006Q2

REPORT INFORMATION
  Report Type: 
  Country: None (occurrence: None)
  Receive Date: 20060531
  Receipt Date: 20060519
  Transmission Date: 20061013
  Serious: Yes (Life-Threatening)
  Sender: FDA-Public Use
  Company Number: GB-JNJFOC-20060405520

PATIENT
  Sex: Male
  Weight: 67 kg

DRUGS (13)
  1. BLINDED; ABCIXIMA [Suspect]
     Dosage: 0.125 MCG/KG/MIN MAKE 3.1 ML OF 2MG/ML TOTAL VOL 50 ML INFUSION AT 4 ML/HOUR OVER 12 HOURS
     Route: 042
  2. BLINDED; ABCIXIMA [Suspect]
     Indication: ACUTE MYOCARDIAL INFARCTION
     Route: 042
  3. RETAPLASE [Suspect]
     Indication: ACUTE MYOCARDIAL INFARCTION
     Route: 042
  4. PLACEBO [Suspect]
     Indication: ACUTE MYOCARDIAL INFARCTION
     Route: 042
  5. ASPIRIN [Concomitant]
     Indication: ANTIPLATELET THERAPY
     Route: 048
  6. ENOXAPARIN SODIUM [Concomitant]
     Indication: ANTICOAGULANT THERAPY
     Dosage: 33 5MG 20 1MG STAT
     Route: 042
  7. ENOXAPARIN SODIUM [Concomitant]
     Route: 058
  8. CLOPIDOGREL [Concomitant]
     Indication: ANTIPLATELET THERAPY
     Dosage: 33 5MG 20 1MG STAT
     Route: 048
  9. FINASTERIDE [Concomitant]
     Route: 048
  10. SIMVASTATIN [Concomitant]
     Route: 048
  11. OMEPRAZOLE [Concomitant]
     Route: 048
  12. RAMIPRIL [Concomitant]
     Indication: MYOCARDIAL INFARCTION
     Route: 048
  13. METOPROLOL TARTRATE [Concomitant]
     Indication: MYOCARDIAL INFARCTION
     Route: 048

REACTIONS (2)
  - CHEST PAIN [None]
  - VENTRICULAR FIBRILLATION [None]
